FAERS Safety Report 15757608 (Version 2)
Quarter: 2019Q1

REPORT INFORMATION
  Report Type: Spontaneous
  Country: CN (occurrence: CN)
  Receive Date: 20181224
  Receipt Date: 20190214
  Transmission Date: 20190417
  Serious: Yes (Other)
  Sender: FDA-Public Use
  Company Number: CN-GILEAD-2018-0381728

PATIENT
  Age: 47 Year
  Sex: Male

DRUGS (2)
  1. ADEFOVIR DIPIVOXIL. [Suspect]
     Active Substance: ADEFOVIR DIPIVOXIL
     Indication: CHRONIC HEPATITIS B
     Dosage: 10 MG, QD
     Route: 065
     Dates: start: 2008
  2. LAMIVUDINE. [Concomitant]
     Active Substance: LAMIVUDINE
     Indication: HEPATITIS B

REACTIONS (13)
  - Pain in extremity [Recovered/Resolved]
  - Bone marrow oedema [Recovering/Resolving]
  - Blood alkaline phosphatase increased [Unknown]
  - Arteriosclerosis [Recovered/Resolved]
  - Intervertebral disc degeneration [Recovered/Resolved]
  - Bone lesion [Recovered/Resolved]
  - Bone pain [Recovered/Resolved]
  - Back pain [Recovered/Resolved]
  - Osteomalacia [Recovered/Resolved]
  - Osteoporosis [Recovered/Resolved]
  - Arthralgia [Recovered/Resolved]
  - Pneumonitis [Recovered/Resolved]
  - Hypophosphataemia [Recovered/Resolved]
